FAERS Safety Report 6399146-0 (Version None)
Quarter: 2009Q4

REPORT INFORMATION
  Report Type: 
  Country: None (occurrence: None)
  Receive Date: 20091008
  Receipt Date: 20091002
  Transmission Date: 20100525
  Serious: Yes (Other)
  Sender: FDA-Public Use
  Company Number: 2009TJ0220

PATIENT
  Age: 50 Year
  Sex: Female
  Weight: 108.8633 kg

DRUGS (9)
  1. TWINJECT 0.3 [Suspect]
     Indication: HYPERSENSITIVITY
     Dosage: 0.3 MG, AS NEEDED
     Dates: start: 20091001, end: 20091001
  2. FEXOFENADINE [Concomitant]
  3. SINGULAIR [Concomitant]
  4. ALBUTEROL [Concomitant]
  5. METFORMIN [Concomitant]
  6. EFFEXOR [Concomitant]
  7. DIOVAN [Concomitant]
  8. AVANDIA [Concomitant]
  9. TRAZODONE [Concomitant]

REACTIONS (1)
  - DEVICE FAILURE [None]
